FAERS Safety Report 9196419 (Version 1)
Quarter: 2013Q1

REPORT INFORMATION
  Report Type: Spontaneous
  Country: US (occurrence: None)
  Receive Date: 20120709
  Receipt Date: 20120709
  Transmission Date: 20140127
  Serious: No
  Sender: FDA-Public Use
  Company Number: 2012HGS-003525

PATIENT
  Age: 46 Year
  Sex: Female
  Weight: 68.04 kg

DRUGS (9)
  1. BENLYSTA [Suspect]
     Indication: SYSTEMIC LUPUS ERYTHEMATOSUS
     Dates: start: 20120405
  2. SYNTHROID [Concomitant]
  3. ZYRTEC [Concomitant]
  4. ASPIRIN [Concomitant]
  5. MULTIVITAMIN [Concomitant]
  6. PREDNISONE [Concomitant]
  7. PREVACID [Concomitant]
  8. RESTASIS [Concomitant]
  9. FLORINEF [Concomitant]

REACTIONS (3)
  - Anxiety [None]
  - Hypersensitivity [None]
  - Pruritus generalised [None]
